FAERS Safety Report 25280850 (Version 2)
Quarter: 2025Q2

REPORT INFORMATION
  Report Type: Spontaneous
  Country: US (occurrence: US)
  Receive Date: 20250508
  Receipt Date: 20250515
  Transmission Date: 20250717
  Serious: Yes (Other)
  Sender: ASPIRO PHARMA
  Company Number: US-ASPIRO-ASP2025US02180

PATIENT
  Age: 55 Year
  Sex: Male

DRUGS (3)
  1. BUPIVACAINE [Suspect]
     Active Substance: BUPIVACAINE
     Indication: Pain
     Route: 037
  2. SUFENTANIL [Concomitant]
     Active Substance: SUFENTANIL
     Indication: Pain
     Route: 037
  3. CLONIDINE [Concomitant]
     Active Substance: CLONIDINE
     Indication: Pain
     Route: 037

REACTIONS (2)
  - Muscle spasticity [Unknown]
  - Off label use [Unknown]
